FAERS Safety Report 6929362-8 (Version None)
Quarter: 2010Q3

REPORT INFORMATION
  Report Type: 
  Country: None (occurrence: None)
  Receive Date: 20100809
  Receipt Date: 20100308
  Transmission Date: 20110219
  Serious: No
  Sender: FDA-Public Use
  Company Number: US-001645

PATIENT
  Sex: Male

DRUGS (2)
  1. DEGARELIX 240 MG [Suspect]
     Dosage: 240 MG 1X/MONTH SUBCUTANOUS
     Route: 058
     Dates: start: 20100303
  2. ASPIRIN [Concomitant]

REACTIONS (2)
  - INJECTION SITE ERYTHEMA [None]
  - INJECTION SITE PAIN [None]
